FAERS Safety Report 12795990 (Version 3)
Quarter: 2016Q4

REPORT INFORMATION
  Report Type: Spontaneous
  Country: US (occurrence: US)
  Receive Date: 20160929
  Receipt Date: 20161020
  Transmission Date: 20170207
  Serious: Yes (Other)
  Sender: FDA-Public Use
  Company Number: US-SA-2016SA176026

PATIENT
  Age: 38 Year
  Sex: Female

DRUGS (3)
  1. NASACORT ALLERGY 24HR [Suspect]
     Active Substance: TRIAMCINOLONE ACETONIDE
     Indication: HYPERSENSITIVITY
     Route: 045
     Dates: end: 20160914
  2. NASACORT ALLERGY 24HR [Suspect]
     Active Substance: TRIAMCINOLONE ACETONIDE
     Indication: HYPERSENSITIVITY
     Dosage: DOSE:4 UNIT(S)
     Route: 045
  3. NASACORT ALLERGY 24HR [Suspect]
     Active Substance: TRIAMCINOLONE ACETONIDE
     Indication: HYPERSENSITIVITY
     Dosage: DOSE:1 UNIT(S)
     Route: 045

REACTIONS (6)
  - Nasal septum ulceration [Not Recovered/Not Resolved]
  - Ageusia [Not Recovered/Not Resolved]
  - Epistaxis [Unknown]
  - Nasal discomfort [Recovering/Resolving]
  - Nasal septum haematoma [Unknown]
  - Anosmia [Not Recovered/Not Resolved]
